FAERS Safety Report 25668937 (Version 1)
Quarter: 2025Q3

REPORT INFORMATION
  Report Type: Report from Study
  Country: US (occurrence: US)
  Receive Date: 20250812
  Receipt Date: 20250812
  Transmission Date: 20251020
  Serious: Yes (Other)
  Sender: ABBVIE
  Company Number: US-ABBVIE-6407417

PATIENT
  Sex: Male

DRUGS (1)
  1. HUMIRA [Suspect]
     Active Substance: ADALIMUMAB
     Indication: Psoriasis
     Route: 058
     Dates: start: 20220519

REACTIONS (3)
  - Age-related macular degeneration [Not Recovered/Not Resolved]
  - Psoriasis [Recovered/Resolved]
  - Dry age-related macular degeneration [Not Recovered/Not Resolved]
